FAERS Safety Report 10495420 (Version 6)
Quarter: 2015Q2

REPORT INFORMATION
  Report Type: Spontaneous
  Country: US (occurrence: US)
  Receive Date: 20141003
  Receipt Date: 20150615
  Transmission Date: 20150821
  Serious: Yes (Hospitalization, Other)
  Sender: FDA-Public Use
  Company Number: US-PFIZER INC-2014268717

PATIENT
  Age: 29 Year
  Sex: Female

DRUGS (9)
  1. TYLENOL [Concomitant]
     Active Substance: ACETAMINOPHEN
     Dosage: UNK
  2. XELJANZ [Suspect]
     Active Substance: TOFACITINIB CITRATE
     Indication: RHEUMATOID ARTHRITIS
     Dosage: 5 MG, 2X/DAY
     Route: 048
     Dates: start: 201401, end: 201402
  3. XELJANZ [Suspect]
     Active Substance: TOFACITINIB CITRATE
     Dosage: 5 MG, 2X/DAY
     Route: 048
     Dates: start: 201402, end: 201408
  4. ASA [Concomitant]
     Active Substance: ASPIRIN
     Dosage: UNK
  5. XELJANZ [Suspect]
     Active Substance: TOFACITINIB CITRATE
     Dosage: 5 MG, 2X/DAY
     Route: 048
     Dates: start: 201408, end: 201409
  6. XELJANZ [Suspect]
     Active Substance: TOFACITINIB CITRATE
     Dosage: 5 MG, 2X/DAY
     Route: 048
     Dates: end: 201410
  7. XELJANZ [Suspect]
     Active Substance: TOFACITINIB CITRATE
     Dosage: 10 MG, 2X/DAY
     Dates: start: 201406
  8. PREDNISONE. [Concomitant]
     Active Substance: PREDNISONE
     Indication: RHEUMATOID ARTHRITIS
     Dosage: 15 MG, DAILY
  9. CALCIUM CARBONATE/RETINOL [Concomitant]
     Dosage: UNK

REACTIONS (13)
  - Kidney infection [Recovered/Resolved]
  - Nausea [Unknown]
  - Urinary tract infection [Unknown]
  - Influenza like illness [Recovered/Resolved]
  - Disease recurrence [Recovered/Resolved]
  - Vision blurred [Recovered/Resolved]
  - Gait disturbance [Recovered/Resolved]
  - Cystitis [Recovered/Resolved]
  - Pyelonephritis [Recovered/Resolved]
  - Sepsis [Unknown]
  - Pain [Recovered/Resolved]
  - Headache [Unknown]
  - Vomiting [Recovered/Resolved]

NARRATIVE: CASE EVENT DATE: 201402
